FAERS Safety Report 5872374-6 (Version None)
Quarter: 2008Q3

REPORT INFORMATION
  Report Type: 
  Country: None (occurrence: None)
  Receive Date: 20080905
  Receipt Date: 20080827
  Transmission Date: 20090109
  Serious: Yes (Other)
  Sender: FDA-Public Use
  Company Number: ES-JNJFOC-20080806447

PATIENT
  Age: 13 Year
  Sex: Female

DRUGS (4)
  1. REMICADE [Suspect]
     Dosage: 4 INFLIXIMAB INFUSIONS WERE ADMINISTERED
     Route: 042
  2. REMICADE [Suspect]
     Indication: CROHN'S DISEASE
     Dosage: SECOND AND THIRD INFUSION DATES UNKNOWN
     Route: 042
  3. AZATHIOPRINE [Concomitant]
  4. OMEPRAZOLE [Concomitant]

REACTIONS (4)
  - ANAPHYLACTIC REACTION [None]
  - CYANOSIS [None]
  - HYPOTONIA [None]
  - INFUSION RELATED REACTION [None]
